FAERS Safety Report 7945745-1 (Version None)
Quarter: 2011Q4

REPORT INFORMATION
  Report Type: 
  Country: None (occurrence: None)
  Receive Date: 20111129
  Receipt Date: 20111121
  Transmission Date: 20120403
  Serious: Yes (Hospitalization)
  Sender: FDA-Public Use
  Company Number: JP-B.I. PHARMACEUTICALS,INC./RIDGEFIELD-2011-BP-26882YA

PATIENT
  Age: 84 Year
  Sex: Male

DRUGS (2)
  1. TAMSULOSIN HCL [Suspect]
     Dosage: 0.2 MG
     Route: 048
  2. MIRABEGRON [Suspect]
     Indication: HYPERTONIC BLADDER
     Dosage: 24 MG
     Route: 048

REACTIONS (2)
  - HYDRONEPHROSIS [None]
  - URINARY RETENTION [None]
